FAERS Safety Report 5793087-5 (Version None)
Quarter: 2008Q2

REPORT INFORMATION
  Report Type: 
  Country: None (occurrence: None)
  Receive Date: 20080627
  Receipt Date: 20080613
  Transmission Date: 20081010
  Serious: Yes (Hospitalization, Other)
  Sender: FDA-Public Use
  Company Number: US-ELI_LILLY_AND_COMPANY-US200806003120

PATIENT
  Age: 79 Year
  Sex: Female

DRUGS (3)
  1. FORTEO [Suspect]
     Indication: SPINAL DISORDER
     Dosage: UNK, UNK
     Dates: start: 20080314
  2. CRESTOR [Concomitant]
     Dates: start: 20080301, end: 20080101
  3. LIPITOR [Concomitant]
     Dates: start: 20080301, end: 20080101

REACTIONS (17)
  - ACTIVITIES OF DAILY LIVING IMPAIRED [None]
  - ADVERSE DRUG REACTION [None]
  - BLOOD CHOLESTEROL INCREASED [None]
  - CARDIAC ENZYMES INCREASED [None]
  - CHEST PAIN [None]
  - CORONARY ARTERY OCCLUSION [None]
  - DECREASED APPETITE [None]
  - DIARRHOEA [None]
  - DIVERTICULITIS [None]
  - DIVERTICULUM [None]
  - HYPOAESTHESIA [None]
  - INTESTINAL OBSTRUCTION [None]
  - MYOCARDIAL INFARCTION [None]
  - PAIN [None]
  - PAIN IN EXTREMITY [None]
  - PYREXIA [None]
  - WEIGHT DECREASED [None]
